FAERS Safety Report 21816734 (Version 1)
Quarter: 2023Q1

REPORT INFORMATION
  Report Type: Spontaneous
  Country: US (occurrence: None)
  Receive Date: 20230103
  Receipt Date: 20230103
  Transmission Date: 20230417
  Serious: No
  Sender: FDA-Public Use
  Company Number: None

PATIENT
  Age: 33 Year
  Sex: Male
  Weight: 78.75 kg

DRUGS (2)
  1. FINASTERIDE [Suspect]
     Active Substance: FINASTERIDE
     Indication: Androgenetic alopecia
     Dosage: OTHER QUANTITY : 1 TABLET(S);?FREQUENCY : DAILY;?
     Route: 048
     Dates: start: 20220425, end: 20220725
  2. FINASTERIDE 0.1% / MINOXIDIL 5% [Suspect]
     Active Substance: FINASTERIDE\MINOXIDIL
     Indication: Androgenetic alopecia
     Dosage: FREQUENCY : DAILY;?
     Route: 061
     Dates: start: 20220726, end: 20220925

REACTIONS (15)
  - Flat affect [None]
  - Loss of libido [None]
  - Adverse drug reaction [None]
  - Endocrine disorder [None]
  - Stress [None]
  - Feeling abnormal [None]
  - Decreased interest [None]
  - Erectile dysfunction [None]
  - Genital hypoaesthesia [None]
  - Genital atrophy [None]
  - Premature ejaculation [None]
  - Semen volume decreased [None]
  - Testicular pain [None]
  - Suicidal ideation [None]
  - Feeling abnormal [None]

NARRATIVE: CASE EVENT DATE: 20221020
